FAERS Safety Report 7453353-4 (Version None)
Quarter: 2011Q2

REPORT INFORMATION
  Report Type: 
  Country: None (occurrence: None)
  Receive Date: 20110502
  Receipt Date: 20110419
  Transmission Date: 20111010
  Serious: Yes (Hospitalization, Other)
  Sender: FDA-Public Use
  Company Number: PHEH2006US10894

PATIENT
  Sex: Female
  Weight: 111.11 kg

DRUGS (37)
  1. PROVENTIL [Concomitant]
     Dosage: 2 PUFFS PRN
  2. CYMBALTA [Concomitant]
  3. OTHER ANTINEOPLASTIC AGENTS [Concomitant]
  4. FEMARA [Concomitant]
     Dosage: 2.5 MG, UNK
     Route: 048
     Dates: start: 20050601, end: 20060101
  5. PROVIGIL [Concomitant]
  6. VITAMIN D [Concomitant]
  7. ZOMETA [Suspect]
     Indication: BREAST CANCER METASTATIC
     Dosage: 4 MG, QMO
     Dates: start: 20050601, end: 20060628
  8. DARVOCET-N 50 [Concomitant]
  9. AROMASIN [Concomitant]
  10. DUONEB [Concomitant]
  11. KLONOPIN [Concomitant]
  12. NORCO [Concomitant]
  13. ACETAMINOPHEN [Concomitant]
  14. ATENOLOL [Concomitant]
  15. TAXOTERE [Concomitant]
  16. OXYCONTIN [Concomitant]
  17. DIOVAN [Concomitant]
  18. COLACE [Concomitant]
  19. VENTOLIN [Concomitant]
  20. LORAZEPAM [Concomitant]
  21. OXYGEN [Concomitant]
  22. PEPCID [Concomitant]
  23. TORADOL [Concomitant]
  24. COMPAZINE [Concomitant]
  25. ASPIRIN [Concomitant]
  26. METHOTREXATE [Concomitant]
  27. ADVAIR DISKUS 100/50 [Concomitant]
  28. ZYRTEC [Concomitant]
  29. K-DUR [Concomitant]
  30. MAGNESIUM SUPPLEMENTS [Concomitant]
  31. PAXIL [Concomitant]
     Dosage: 40 MG, QD
     Route: 048
  32. TESTOSTERONE [Concomitant]
  33. MEGACE [Concomitant]
  34. AREDIA [Suspect]
  35. CYTOXAN [Concomitant]
  36. OXYCODONE [Concomitant]
  37. NASONEX [Concomitant]

REACTIONS (99)
  - SLEEP APNOEA SYNDROME [None]
  - COMPRESSION FRACTURE [None]
  - FATIGUE [None]
  - WHEEZING [None]
  - HEPATOMEGALY [None]
  - DYSPNOEA [None]
  - HYPERTENSION [None]
  - RECTOCELE [None]
  - BONE LESION [None]
  - METASTATIC PAIN [None]
  - PATELLOFEMORAL PAIN SYNDROME [None]
  - OSTEOPOROSIS [None]
  - OSTEOSCLEROSIS [None]
  - NEUROPATHY PERIPHERAL [None]
  - NEOPLASM MALIGNANT [None]
  - OSTEOARTHRITIS [None]
  - GAIT DISTURBANCE [None]
  - KYPHOSIS [None]
  - SUICIDAL IDEATION [None]
  - CHRONIC SINUSITIS [None]
  - TOTAL LUNG CAPACITY DECREASED [None]
  - TOOTH ABSCESS [None]
  - HYPOXIA [None]
  - NOCTURIA [None]
  - RIB FRACTURE [None]
  - CEREBROVASCULAR DISORDER [None]
  - THROAT CANCER [None]
  - NEPHROLITHIASIS [None]
  - INJURY [None]
  - ASTHENIA [None]
  - VAGINAL HAEMORRHAGE [None]
  - PULMONARY CONGESTION [None]
  - BACK PAIN [None]
  - ISCHAEMIC CEREBRAL INFARCTION [None]
  - SPLEEN DISORDER [None]
  - INFLUENZA [None]
  - DYSPNOEA EXERTIONAL [None]
  - RENAL ATROPHY [None]
  - ANXIETY [None]
  - BONE SCAN ABNORMAL [None]
  - BREAST NECROSIS [None]
  - BURSITIS [None]
  - FAILURE TO THRIVE [None]
  - DRUG ABUSE [None]
  - SEASONAL ALLERGY [None]
  - JOINT SPRAIN [None]
  - MUSCLE STRAIN [None]
  - LUNG NEOPLASM [None]
  - CARBOHYDRATE ANTIGEN 27.29 INCREASED [None]
  - CARDIOMEGALY [None]
  - SENSATION OF FOREIGN BODY [None]
  - NERVE COMPRESSION [None]
  - OSTEONECROSIS OF JAW [None]
  - PATHOLOGICAL FRACTURE [None]
  - METASTASES TO BONE [None]
  - OSTEOLYSIS [None]
  - ASTHMA [None]
  - PERSONALITY DISORDER [None]
  - CONFUSIONAL STATE [None]
  - ARTHRALGIA [None]
  - COSTOCHONDRITIS [None]
  - HERPES ZOSTER [None]
  - BRONCHITIS [None]
  - IMPAIRED HEALING [None]
  - GOUT [None]
  - ATELECTASIS [None]
  - GLIOSIS [None]
  - TENDON DISORDER [None]
  - AMNESIA [None]
  - PNEUMONIA [None]
  - RESORPTION BONE INCREASED [None]
  - PAIN [None]
  - HYPERTONIC BLADDER [None]
  - CHRONIC OBSTRUCTIVE PULMONARY DISEASE [None]
  - BIPOLAR I DISORDER [None]
  - FALL [None]
  - METASTATIC NEOPLASM [None]
  - HYPOAESTHESIA [None]
  - HOT FLUSH [None]
  - CARDIAC FAILURE CONGESTIVE [None]
  - NEURODERMATITIS [None]
  - FLUID RETENTION [None]
  - THIRST [None]
  - MYOFASCIAL PAIN SYNDROME [None]
  - VISION BLURRED [None]
  - METASTATIC RENAL CELL CARCINOMA [None]
  - PNEUMONITIS [None]
  - NIGHT SWEATS [None]
  - MUSCULOSKELETAL CHEST PAIN [None]
  - OEDEMA PERIPHERAL [None]
  - DIVERTICULUM INTESTINAL [None]
  - DECREASED APPETITE [None]
  - CHEST PAIN [None]
  - OEDEMA [None]
  - UPPER RESPIRATORY TRACT INFECTION [None]
  - SCOLIOSIS [None]
  - BONE DISORDER [None]
  - TRANSIENT ISCHAEMIC ATTACK [None]
  - MYALGIA [None]
